FAERS Safety Report 24657136 (Version 1)
Quarter: 2024Q4

REPORT INFORMATION
  Report Type: Spontaneous
  Country: IT (occurrence: IT)
  Receive Date: 20241125
  Receipt Date: 20241125
  Transmission Date: 20250115
  Serious: Yes (Other)
  Sender: CHEPLAPHARM
  Company Number: IT-002147023-NVSC2024IT219092

PATIENT
  Age: 25 Day
  Sex: Male

DRUGS (14)
  1. VALGANCICLOVIR [Suspect]
     Active Substance: VALGANCICLOVIR
     Indication: Congenital cytomegalovirus infection
     Dosage: 16 MG/KG, Q12H?DAILY DOSE: 32 MILLIGRAM/KG
     Route: 048
  2. VALGANCICLOVIR [Suspect]
     Active Substance: VALGANCICLOVIR
     Indication: Congenital cytomegalovirus infection
     Dosage: 8 MG/KG, Q12H?DAILY DOSE: 16 MILLIGRAM/KG
     Route: 048
  3. RANIBIZUMAB [Suspect]
     Active Substance: RANIBIZUMAB
     Indication: Retinopathy of prematurity
     Dosage: 0.2 MG
     Route: 031
  4. PROPOFOL [Concomitant]
     Active Substance: PROPOFOL
     Indication: Anaesthesia
     Dosage: UNK
  5. KETAMINE [Concomitant]
     Active Substance: KETAMINE
     Indication: Anaesthesia
     Dosage: UNK
  6. FLUCONAZOLE [Concomitant]
     Active Substance: FLUCONAZOLE
     Indication: Antibiotic prophylaxis
     Dosage: UNK
  7. GENTAMICIN [Concomitant]
     Active Substance: GENTAMICIN
     Indication: Antibiotic prophylaxis
     Dosage: UNK
  8. AMIKACIN [Concomitant]
     Active Substance: AMIKACIN
     Indication: Pneumonia
     Dosage: UNK
  9. AMIKACIN [Concomitant]
     Active Substance: AMIKACIN
     Indication: Antibiotic prophylaxis
     Dosage: UNK
  10. Vancomycin/Amikacin [Concomitant]
     Indication: Pneumonia
     Dosage: UNK
  11. CEFTAROLINE [Concomitant]
     Active Substance: CEFTAROLINE
     Indication: Pneumonia
     Dosage: UNK (FOR 5 DAYS)
  12. TROPICAMIDE [Concomitant]
     Active Substance: TROPICAMIDE
     Route: 061
  13. TOBRAMYCIN AND DEXAMETHASONE [Concomitant]
     Active Substance: DEXAMETHASONE\TOBRAMYCIN
  14. OFLOXACIN [Concomitant]
     Active Substance: OFLOXACIN
     Route: 047

REACTIONS (5)
  - Neutropenia [Recovering/Resolving]
  - Necrotising colitis [Recovering/Resolving]
  - Respiratory distress [Recovering/Resolving]
  - Bradycardia [Recovering/Resolving]
  - Off label use [Unknown]
